FAERS Safety Report 17171437 (Version 1)
Quarter: 2019Q4

REPORT INFORMATION
  Report Type: Spontaneous
  Country: ES (occurrence: ES)
  Receive Date: 20191218
  Receipt Date: 20191218
  Transmission Date: 20200122
  Serious: Yes (Disabling)
  Sender: FDA-Public Use
  Company Number: ES-ALLERGAN-1951904US

PATIENT
  Sex: Female
  Weight: 52 kg

DRUGS (1)
  1. FOSFOMYCIN TROMETHAMINE - BP [Suspect]
     Active Substance: FOSFOMYCIN TROMETHAMINE
     Indication: CYSTITIS
     Dosage: ONE SACHET AT NIGHT
     Route: 048
     Dates: start: 20191121, end: 20191124

REACTIONS (2)
  - Overdose [Unknown]
  - Nausea [Not Recovered/Not Resolved]

NARRATIVE: CASE EVENT DATE: 20191122
